FAERS Safety Report 5282013-3 (Version None)
Quarter: 2007Q1

REPORT INFORMATION
  Report Type: 
  Country: None (occurrence: None)
  Receive Date: 20070330
  Receipt Date: 20070323
  Transmission Date: 20070707
  Serious: Yes (Hospitalization)
  Sender: FDA-Public Use
  Company Number: FR-ABBOTT-07P-056-0362938-00

PATIENT
  Age: 79 Year
  Sex: Male

DRUGS (2)
  1. DEPAKENE [Suspect]
     Indication: CONVULSION
     Route: 042
     Dates: start: 20070122, end: 20070122
  2. DEPAKENE [Suspect]
     Indication: CONVULSION
     Route: 048
     Dates: start: 20070122, end: 20070202

REACTIONS (5)
  - BLOOD FIBRINOGEN INCREASED [None]
  - COAGULATION FACTOR VII LEVEL DECREASED [None]
  - PROTHROMBIN LEVEL DECREASED [None]
  - PROTHROMBIN TIME SHORTENED [None]
  - THROMBOCYTOPENIA [None]
